FAERS Safety Report 10231163 (Version 2)
Quarter: 2014Q3

REPORT INFORMATION
  Report Type: Spontaneous
  Country: US (occurrence: US)
  Receive Date: 20140611
  Receipt Date: 20140801
  Transmission Date: 20150326
  Serious: Yes (Other)
  Sender: FDA-Public Use
  Company Number: US-GLAXOSMITHKLINE-A1075811A

PATIENT
  Age: 65 Year
  Sex: Female

DRUGS (1)
  1. ABREVA [Suspect]
     Active Substance: DOCOSANOL
     Indication: ORAL HERPES
     Route: 061
     Dates: start: 201405

REACTIONS (6)
  - Application site infection [Unknown]
  - Application site paraesthesia [Unknown]
  - Application site reaction [Unknown]
  - Application site scar [Unknown]
  - Application site erythema [Not Recovered/Not Resolved]
  - Application site erythema [Unknown]
